FAERS Safety Report 5427313-9 (Version None)
Quarter: 2007Q3

REPORT INFORMATION
  Report Type: 
  Country: None (occurrence: None)
  Receive Date: 20070823
  Receipt Date: 20070618
  Transmission Date: 20080115
  Serious: Yes (Other)
  Sender: FDA-Public Use
  Company Number: 6035541

PATIENT
  Age: 29 Year
  Sex: Female

DRUGS (3)
  1. SERTRALINE [Suspect]
     Indication: DEPRESSION
     Dosage: 200 MG (200 MG, 1 IN 1 D) ORAL
     Route: 048
  2. MIRTAZAPINE [Concomitant]
  3. QUETIAPINE FUMARATE [Concomitant]

REACTIONS (1)
  - PHOTOSENSITIVITY REACTION [None]
